FAERS Safety Report 17931627 (Version 3)
Quarter: 2021Q2

REPORT INFORMATION
  Report Type: Other
  Country: IN (occurrence: IN)
  Receive Date: 20200624
  Receipt Date: 20210423
  Transmission Date: 20210717
  Serious: Yes (Other)
  Sender: FDA-Public Use
  Company Number: IN-ROCHE-2595007

PATIENT
  Age: 62 Year
  Sex: Female

DRUGS (1)
  1. TECENTRIQ [Suspect]
     Active Substance: ATEZOLIZUMAB
     Indication: TRIPLE NEGATIVE BREAST CANCER
     Dosage: SUBSEQUENT DOSES ON 31/MAR/2020 AND 02/MAY/2020
     Route: 042
     Dates: start: 20200330, end: 20200502

REACTIONS (10)
  - Dizziness [Unknown]
  - Arthralgia [Unknown]
  - Drug ineffective [Unknown]
  - Abdominal discomfort [Unknown]
  - Deafness [Unknown]
  - Immunodeficiency [Unknown]
  - Constipation [Unknown]
  - Abdominal pain [Unknown]
  - Asthenia [Unknown]
  - Pain [Unknown]
